FAERS Safety Report 4668991-1 (Version None)
Quarter: 2005Q2

REPORT INFORMATION
  Report Type: 
  Country: None (occurrence: None)
  Receive Date: 20050523
  Receipt Date: 20050519
  Transmission Date: 20051028
  Serious: Yes (Hospitalization)
  Sender: FDA-Public Use
  Company Number: FR-GLAXOSMITHKLINE-B0381691A

PATIENT
  Age: 89 Year
  Sex: Male

DRUGS (5)
  1. CLAMOXYL [Suspect]
     Indication: URINARY TRACT INFECTION
     Dosage: 3G PER DAY
     Route: 048
     Dates: start: 20050326, end: 20050331
  2. OFLOCET [Suspect]
     Indication: URINARY TRACT INFECTION
     Dosage: 400MG PER DAY
     Route: 048
     Dates: start: 20050325, end: 20050404
  3. LASILIX [Concomitant]
     Route: 065
  4. SINTROM [Concomitant]
     Route: 065
  5. TRIATEC [Concomitant]
     Route: 065

REACTIONS (3)
  - LEUKOCYTOCLASTIC VASCULITIS [None]
  - PLATELET COUNT DECREASED [None]
  - VASCULAR PURPURA [None]
